FAERS Safety Report 18393870 (Version 1)
Quarter: 2020Q4

REPORT INFORMATION
  Report Type: Spontaneous
  Country: RU (occurrence: RU)
  Receive Date: 20201016
  Receipt Date: 20201016
  Transmission Date: 20210114
  Serious: Yes (Hospitalization)
  Sender: FDA-Public Use
  Company Number: RU-ELI_LILLY_AND_COMPANY-RU202009013574

PATIENT
  Age: 89 Year
  Sex: Female

DRUGS (1)
  1. HUMULIN 70/30 [Suspect]
     Active Substance: INSULIN HUMAN
     Indication: PRODUCT USED FOR UNKNOWN INDICATION
     Dosage: UNK UNK, UNKNOWN
     Route: 065
     Dates: start: 2005

REACTIONS (9)
  - Incorrect dose administered [Unknown]
  - Alopecia [Recovering/Resolving]
  - Limb discomfort [Unknown]
  - Blood glucose increased [Unknown]
  - Visual impairment [Recovering/Resolving]
  - Coronavirus infection [Recovering/Resolving]
  - Oral pain [Unknown]
  - Gingival pain [Unknown]
  - Pneumonia [Recovering/Resolving]

NARRATIVE: CASE EVENT DATE: 202004
